FAERS Safety Report 9820638 (Version 1)
Quarter: 2013Q4

REPORT INFORMATION
  Report Type: Spontaneous
  Country: US (occurrence: None)
  Receive Date: 20131028
  Receipt Date: 20131028
  Transmission Date: 20140711
  Serious: No
  Sender: FDA-Public Use
  Company Number: 2013US001781

PATIENT
  Age: 37 Year
  Sex: Male
  Weight: 129 kg

DRUGS (3)
  1. ICLUSIG [Suspect]
     Indication: CHRONIC MYELOID LEUKAEMIA
     Route: 048
     Dates: start: 20130406, end: 20130524
  2. COREG (CARVEDIOL) [Concomitant]
  3. PROCARDIA (NIFEDIPINE) [Concomitant]

REACTIONS (3)
  - Hepatomegaly [None]
  - Blood bilirubin increased [None]
  - Adverse drug reaction [None]
